FAERS Safety Report 7358463-8 (Version None)
Quarter: 2011Q1

REPORT INFORMATION
  Report Type: 
  Country: None (occurrence: None)
  Receive Date: 20110317
  Receipt Date: 20110314
  Transmission Date: 20110831
  Serious: Yes (Life-Threatening, Hospitalization, Other)
  Sender: FDA-Public Use
  Company Number: JP-PFIZER INC-2011037830

PATIENT
  Age: 49 Year
  Sex: Male

DRUGS (2)
  1. CHAMPIX [Suspect]
     Indication: SMOKING CESSATION THERAPY
     Dosage: 1 MG, 2X/DAY
     Route: 048
     Dates: start: 20101015, end: 20110106
  2. CHAMPIX [Suspect]
     Dosage: UNK
     Dates: start: 20110115, end: 20110117

REACTIONS (16)
  - DEPRESSED LEVEL OF CONSCIOUSNESS [None]
  - NERVOUS SYSTEM DISORDER [None]
  - THINKING ABNORMAL [None]
  - FEELING ABNORMAL [None]
  - INTENTIONAL OVERDOSE [None]
  - DEPRESSION [None]
  - ANXIETY [None]
  - DISTURBANCE IN ATTENTION [None]
  - APATHY [None]
  - INSOMNIA [None]
  - TREMOR [None]
  - SUICIDE ATTEMPT [None]
  - DISORIENTATION [None]
  - JUDGEMENT IMPAIRED [None]
  - HEAD DISCOMFORT [None]
  - MALAISE [None]
